FAERS Safety Report 7641837-5 (Version None)
Quarter: 2011Q3

REPORT INFORMATION
  Report Type: 
  Country: None (occurrence: None)
  Receive Date: 20110728
  Receipt Date: 20110720
  Transmission Date: 20111222
  Serious: Yes (Other)
  Sender: FDA-Public Use
  Company Number: US-ROCHE-791200

PATIENT

DRUGS (3)
  1. ACCUTANE [Suspect]
     Route: 065
     Dates: start: 19860101, end: 19870101
  2. ACCUTANE [Suspect]
     Route: 065
     Dates: start: 19890101, end: 19900101
  3. ACCUTANE [Suspect]
     Route: 065
     Dates: start: 19950101, end: 19960101

REACTIONS (2)
  - COLON CANCER [None]
  - INFLAMMATORY BOWEL DISEASE [None]
